FAERS Safety Report 11532660 (Version 1)
Quarter: 2015Q3

REPORT INFORMATION
  Report Type: Spontaneous
  Country: US (occurrence: US)
  Receive Date: 20150903
  Receipt Date: 20150903
  Transmission Date: 20151125
  Serious: No
  Sender: FDA-Public Use
  Company Number: US-ELI_LILLY_AND_COMPANY-US201203003506

PATIENT
  Sex: Male

DRUGS (2)
  1. HUMALOG [Suspect]
     Active Substance: INSULIN LISPRO
     Indication: DIABETES MELLITUS
     Dosage: SLIDING SCALE
     Dates: start: 2010
  2. HUMALOG [Suspect]
     Active Substance: INSULIN LISPRO
     Dosage: SLIDING SCALE
     Dates: start: 2010

REACTIONS (7)
  - Hunger [Unknown]
  - Anxiety [Unknown]
  - Weight increased [Recovering/Resolving]
  - Hyperhidrosis [Unknown]
  - Headache [Unknown]
  - Vision blurred [Unknown]
  - Tremor [Unknown]

NARRATIVE: CASE EVENT DATE: 2010
